FAERS Safety Report 7722963-9 (Version None)
Quarter: 2011Q3

REPORT INFORMATION
  Report Type: 
  Country: None (occurrence: None)
  Receive Date: 20110901
  Receipt Date: 20110820
  Transmission Date: 20111222
  Serious: Yes (Death)
  Sender: FDA-Public Use
  Company Number: US-JNJFOC-20110709411

PATIENT
  Sex: Male
  Weight: 113.85 kg

DRUGS (27)
  1. LASIX [Concomitant]
     Indication: DIURETIC THERAPY
     Route: 048
     Dates: end: 20110712
  2. POTASSIUM CHLORIDE [Concomitant]
     Indication: ELECTROLYTE SUBSTITUTION THERAPY
     Route: 048
     Dates: end: 20110712
  3. OXYGEN [Concomitant]
  4. TRIAMCINOLONE ACETONIDE [Concomitant]
     Indication: PSORIASIS
  5. STELARA [Suspect]
     Indication: PSORIASIS
     Route: 058
     Dates: start: 20110621, end: 20110621
  6. ENALAPRIL MALEATE [Concomitant]
     Indication: HYPERTENSION
     Route: 048
     Dates: end: 20110712
  7. ACITRETIN [Concomitant]
  8. METOLAZONE [Concomitant]
  9. ZOCOR [Concomitant]
     Indication: BLOOD CHOLESTEROL INCREASED
  10. ALL OTHER THERAPEUTIC PRODUCTS [Concomitant]
  11. FLOMAX [Concomitant]
     Indication: PROSTATIC DISORDER
     Route: 048
     Dates: end: 20110712
  12. DETROL LA [Concomitant]
     Indication: URINARY RETENTION
     Route: 048
     Dates: end: 20110712
  13. TRAZODONE HYDROCHLORIDE [Concomitant]
     Indication: SLEEP DISORDER
     Route: 048
     Dates: end: 20110712
  14. TRAMADOL HCL [Concomitant]
     Indication: PAIN
     Route: 048
     Dates: end: 20110712
  15. ERYTHROMYCIN [Concomitant]
  16. DICLOFENAC SODIUM [Concomitant]
     Indication: INFLAMMATION
     Route: 048
     Dates: end: 20110712
  17. METFORMIN [Concomitant]
     Indication: DIABETES MELLITUS
     Route: 048
     Dates: end: 20110712
  18. SORIATANE [Concomitant]
     Indication: PSORIASIS
     Route: 048
     Dates: end: 20110712
  19. ASPIRIN [Concomitant]
     Indication: CARDIAC DISORDER
  20. FLUTICASONE PROPIONATE [Concomitant]
     Indication: RHINITIS
  21. GLIPIZIDE [Concomitant]
     Indication: DIABETES MELLITUS
     Route: 048
     Dates: end: 20110712
  22. ZAROXOLYN [Concomitant]
     Indication: HYPERTENSION
     Route: 048
     Dates: end: 20110712
  23. SIMVASTATIN [Concomitant]
     Indication: HYPERLIPIDAEMIA
     Route: 048
     Dates: end: 20110712
  24. ULTRAM [Concomitant]
     Indication: PAIN
  25. OPTIVAR [Concomitant]
  26. VITAMIN D [Concomitant]
     Indication: MEDICAL DIET
     Route: 048
     Dates: end: 20110712
  27. ACETAMINOPHEN [Concomitant]
     Indication: PAIN

REACTIONS (1)
  - ACUTE MYOCARDIAL INFARCTION [None]
